FAERS Safety Report 8601187-7 (Version None)
Quarter: 2012Q3

REPORT INFORMATION
  Report Type: 
  Country: None (occurrence: None)
  Receive Date: 20120817
  Receipt Date: 20120814
  Transmission Date: 20120928
  Serious: Yes (Death)
  Sender: FDA-Public Use
  Company Number: PHHY2012MX070510

PATIENT
  Sex: Male

DRUGS (1)
  1. EXFORGE HCT [Suspect]
     Indication: HYPERTENSION
     Dosage: 2 DF (160 MG VALS, 5 MG AMLO AND 12.5 MG HYDRO), PER DAY,
     Dates: start: 20120630

REACTIONS (1)
  - DEATH [None]
